FAERS Safety Report 7298265-4 (Version None)
Quarter: 2011Q1

REPORT INFORMATION
  Report Type: 
  Country: None (occurrence: None)
  Receive Date: 20110217
  Receipt Date: 20100423
  Transmission Date: 20110831
  Serious: No
  Sender: FDA-Public Use
  Company Number: US-PFIZER INC-2010052574

PATIENT
  Sex: Female
  Weight: 70.295 kg

DRUGS (2)
  1. TIMOPTIC [Concomitant]
     Dosage: UNK
  2. XALATAN [Suspect]
     Dosage: 2.5 ML, DAILY
     Dates: start: 20100324

REACTIONS (2)
  - EYELID PAIN [None]
  - OCULAR DISCOMFORT [None]
